FAERS Safety Report 14471156 (Version 1)
Quarter: 2018Q1

REPORT INFORMATION
  Report Type: Spontaneous
  Country: US (occurrence: US)
  Receive Date: 20180130
  Receipt Date: 20180130
  Transmission Date: 20180509
  Serious: No
  Sender: FDA-Public Use
  Company Number: None

PATIENT
  Age: 61 Year
  Sex: Female
  Weight: 76.5 kg

DRUGS (3)
  1. CITRACAL [Concomitant]
     Active Substance: CALCIUM CITRATE
  2. MOVANTIK [Concomitant]
     Active Substance: NALOXEGOL OXALATE
  3. TEMAZEPAM 15MG CAPSULE QUALITEST PHARMACEUTICALS [Suspect]
     Active Substance: TEMAZEPAM
     Indication: INSOMNIA
     Dosage: ?          QUANTITY:1 CAPSULE(S);?
     Route: 048
     Dates: start: 20170919

REACTIONS (3)
  - Product substitution issue [None]
  - Drug ineffective [None]
  - Nightmare [None]

NARRATIVE: CASE EVENT DATE: 20170919
